FAERS Safety Report 13612994 (Version 1)
Quarter: 2017Q2

REPORT INFORMATION
  Report Type: Spontaneous
  Country: US (occurrence: US)
  Receive Date: 20170605
  Receipt Date: 20170605
  Transmission Date: 20170830
  Serious: No
  Sender: FDA-Public Use
  Company Number: US-APOTEX-2017AP005773

PATIENT
  Age: 62 Year
  Sex: Female

DRUGS (3)
  1. METFORMIN HYDROCHLORIDE. [Suspect]
     Active Substance: METFORMIN HYDROCHLORIDE
     Indication: DIABETES MELLITUS
     Route: 065
  2. PRAMLINTIDE [Suspect]
     Active Substance: PRAMLINTIDE
     Indication: HYPERGLYCAEMIA
     Route: 065
  3. INSULIN [Suspect]
     Active Substance: INSULIN NOS
     Indication: HYPERGLYCAEMIA
     Dosage: 320 UNITS
     Route: 065

REACTIONS (3)
  - Gastrointestinal disorder [Unknown]
  - Unevaluable event [Unknown]
  - Drug intolerance [Unknown]
